FAERS Safety Report 4819269-4 (Version None)
Quarter: 2005Q4

REPORT INFORMATION
  Report Type: 
  Country: None (occurrence: None)
  Receive Date: 20051012
  Receipt Date: 20050720
  Transmission Date: 20060501
  Serious: No
  Sender: FDA-Public Use
  Company Number: A03200502186

PATIENT
  Age: 80 Year
  Sex: Male

DRUGS (4)
  1. UROXATRAL [Suspect]
     Indication: BLADDER DISORDER
     Dosage: ORAL
     Route: 048
     Dates: start: 20050101
  2. METOPROLOL SUCCINATE [Concomitant]
  3. NIFEDIPINE [Concomitant]
  4. BLOOD PRESSURE MEDICATION NOS [Concomitant]

REACTIONS (3)
  - BLOOD PRESSURE DECREASED [None]
  - FATIGUE [None]
  - HEART RATE ABNORMAL [None]
